FAERS Safety Report 5343796-7 (Version None)
Quarter: 2007Q2

REPORT INFORMATION
  Report Type: 
  Country: None (occurrence: None)
  Receive Date: 20070416
  Receipt Date: 20070210
  Transmission Date: 20071010
  Serious: No
  Sender: FDA-Public Use
  Company Number: 2007SP000471

PATIENT
  Age: 57 Year
  Sex: Female
  Weight: 83.4619 kg

DRUGS (4)
  1. LUNESTA [Suspect]
     Indication: INSOMNIA
     Dosage: 3 MG; ORAL
     Route: 048
     Dates: start: 20061130, end: 20070203
  2. WELLBUTRIN [Concomitant]
  3. GABAPENTIN [Concomitant]
  4. THYROID HORMONES [Concomitant]

REACTIONS (4)
  - AMNESIA [None]
  - DISORIENTATION [None]
  - DRUG WITHDRAWAL SYNDROME [None]
  - FATIGUE [None]
